FAERS Safety Report 11910409 (Version 1)
Quarter: 2016Q1

REPORT INFORMATION
  Report Type: Spontaneous
  Country: AU (occurrence: AU)
  Receive Date: 20160112
  Receipt Date: 20160112
  Transmission Date: 20160526
  Serious: Yes (Other)
  Sender: FDA-Public Use
  Company Number: AU-APOTEX-2016AP005083

PATIENT
  Age: 87 Year
  Sex: Male

DRUGS (1)
  1. APO-ZOLEDRONIC ACID 4MG/5ML [Suspect]
     Active Substance: ZOLEDRONIC ACID
     Indication: PRODUCT USED FOR UNKNOWN INDICATION
     Route: 042

REACTIONS (1)
  - Idiopathic orbital inflammation [Recovered/Resolved]
